FAERS Safety Report 7316480-8 (Version None)
Quarter: 2011Q1

REPORT INFORMATION
  Report Type: 
  Country: None (occurrence: None)
  Receive Date: 20110225
  Receipt Date: 20110214
  Transmission Date: 20110831
  Serious: Yes (Other)
  Sender: FDA-Public Use
  Company Number: ES-AMGEN-ESPSP2011008279

PATIENT
  Age: 66 Year
  Sex: Female

DRUGS (6)
  1. PHARMATON                          /00124801/ [Concomitant]
  2. LAMOTRIGINA [Concomitant]
  3. DAFLON                             /00426001/ [Concomitant]
  4. NPLATE [Suspect]
     Indication: PRODUCT USED FOR UNKNOWN INDICATION
     Dosage: 250 MG, UNK
     Dates: start: 20091218
  5. DEPRAX                             /00447702/ [Concomitant]
  6. REMINYL                            /00382001/ [Concomitant]

REACTIONS (4)
  - OEDEMA PERIPHERAL [None]
  - DEMENTIA ALZHEIMER'S TYPE [None]
  - PHLEBITIS [None]
  - ABASIA [None]
